FAERS Safety Report 7605731-8 (Version None)
Quarter: 2011Q2

REPORT INFORMATION
  Report Type: 
  Country: None (occurrence: None)
  Receive Date: 20110623
  Receipt Date: 20100917
  Transmission Date: 20111010
  Serious: Yes (Other)
  Sender: FDA-Public Use
  Company Number: WWISSUE-499

PATIENT
  Age: 48 Year
  Sex: Female
  Weight: 95.2554 kg

DRUGS (5)
  1. GEODON [Concomitant]
  2. EFFEXOR [Concomitant]
  3. XANAX [Concomitant]
  4. LITHIUM CARBONATE [Suspect]
     Indication: BIPOLAR DISORDER
  5. VENLAFAXINE [Concomitant]

REACTIONS (1)
  - FEELING ABNORMAL [None]
